FAERS Safety Report 12505552 (Version 2)
Quarter: 2016Q3

REPORT INFORMATION
  Report Type: Report from Study
  Country: CO (occurrence: CO)
  Receive Date: 20160628
  Receipt Date: 20160719
  Transmission Date: 20161109
  Serious: Yes (Hospitalization)
  Sender: FDA-Public Use
  Company Number: CO-ABBVIE-16K-036-1662477-00

PATIENT
  Age: 56 Year
  Sex: Male
  Weight: 50 kg

DRUGS (1)
  1. HUMIRA [Suspect]
     Active Substance: ADALIMUMAB
     Indication: COLITIS ULCERATIVE
     Route: 058
     Dates: start: 20150122, end: 20160226

REACTIONS (5)
  - Haematochezia [Recovering/Resolving]
  - Post procedural infection [Recovering/Resolving]
  - Colostomy [Recovering/Resolving]
  - Abdominal pain [Recovering/Resolving]
  - Purulence [Recovering/Resolving]

NARRATIVE: CASE EVENT DATE: 20160523
